FAERS Safety Report 16708540 (Version 2)
Quarter: 2019Q3

REPORT INFORMATION
  Report Type: Report from Study
  Country: US (occurrence: US)
  Receive Date: 20190816
  Receipt Date: 20190821
  Transmission Date: 20191004
  Serious: Yes (Death, Other)
  Sender: FDA-Public Use
  Company Number: US-ROCHE-2373364

PATIENT
  Age: 71 Year
  Sex: Male

DRUGS (1)
  1. CELLCEPT [Suspect]
     Active Substance: MYCOPHENOLATE MOFETIL\MYCOPHENOLATE MOFETIL HYDROCHLORIDE
     Indication: SYSTEMIC LUPUS ERYTHEMATOSUS
     Dosage: TAKE 3 TABLETS PO IN AM AND 2 PO IN PM
     Route: 048

REACTIONS (6)
  - Cardiac disorder [Unknown]
  - Malaise [Unknown]
  - Intentional product use issue [Unknown]
  - Off label use [Unknown]
  - West Nile viral infection [Fatal]
  - Dyspnoea [Unknown]

NARRATIVE: CASE EVENT DATE: 2018
